FAERS Safety Report 4312140-6 (Version None)
Quarter: 2004Q1

REPORT INFORMATION
  Report Type: 
  Country: None (occurrence: None)
  Receive Date: 20040305
  Receipt Date: 20040210
  Transmission Date: 20041129
  Serious: Yes (Death, Hospitalization)
  Sender: FDA-Public Use
  Company Number: DE-BRISTOL-MYERS SQUIBB COMPANY-12502159

PATIENT
  Age: 49 Year
  Sex: Female
  Weight: 65 kg

DRUGS (5)
  1. TAXOL [Suspect]
     Indication: BREAST CANCER METASTATIC
     Route: 042
     Dates: start: 20031127, end: 20040101
  2. DEXAMETHASONE [Concomitant]
     Indication: PREMEDICATION
     Route: 042
  3. CLEMASTINE [Concomitant]
     Indication: PREMEDICATION
     Route: 042
  4. TROPISETRON [Concomitant]
     Indication: PREMEDICATION
  5. RANITIDINE [Concomitant]
     Indication: PREMEDICATION

REACTIONS (6)
  - ALANINE AMINOTRANSFERASE INCREASED [None]
  - ASCITES [None]
  - ASPARTATE AMINOTRANSFERASE INCREASED [None]
  - BREAST CANCER METASTATIC [None]
  - GENERAL PHYSICAL HEALTH DETERIORATION [None]
  - MALIGNANT NEOPLASM PROGRESSION [None]
